FAERS Safety Report 7034334-1 (Version None)
Quarter: 2010Q4

REPORT INFORMATION
  Report Type: 
  Country: None (occurrence: None)
  Receive Date: 20101008
  Receipt Date: 20100924
  Transmission Date: 20110411
  Serious: Yes (Hospitalization)
  Sender: FDA-Public Use
  Company Number: PHHO2008DE02355

PATIENT
  Sex: Male
  Weight: 77 kg

DRUGS (9)
  1. MYFORTIC [Suspect]
     Indication: RENAL TRANSPLANT
     Dosage: 1440 MG, BID
     Route: 048
     Dates: start: 20080118
  2. MYFORTIC [Suspect]
     Dosage: 1440 MG, BID
     Route: 048
  3. NEORAL [Suspect]
     Indication: RENAL TRANSPLANT
     Dosage: 250 MG, BID
     Route: 048
     Dates: start: 20080118
  4. NEORAL [Suspect]
     Dosage: 300 MG, BID
     Route: 048
  5. NEORAL [Suspect]
     Dosage: 325 MG, DAILY
     Route: 048
  6. NEORAL [Suspect]
     Dosage: 150 MG, BID
     Route: 048
  7. PREDNISOLONE [Suspect]
     Indication: RENAL TRANSPLANT
     Dosage: 20 MG, QD
     Route: 048
  8. PREDNISOLONE [Suspect]
     Dosage: 10MG/DAILY
     Dates: start: 20080113
  9. NO TREATMENT RECEIVED NOMED [Suspect]
     Dosage: NO TREATMENT

REACTIONS (9)
  - BLOOD CREATININE INCREASED [None]
  - C-REACTIVE PROTEIN INCREASED [None]
  - CYST DRAINAGE [None]
  - LYMPHOCELE [None]
  - PROTEUS INFECTION [None]
  - SEROMA [None]
  - THERAPEUTIC PROCEDURE [None]
  - URETERIC OBSTRUCTION [None]
  - URETHRITIS [None]
